FAERS Safety Report 21568367 (Version 4)
Quarter: 2022Q4

REPORT INFORMATION
  Report Type: Other
  Country: US (occurrence: None)
  Receive Date: 20221108
  Receipt Date: 20221202
  Transmission Date: 20230113
  Serious: Yes (Other)
  Sender: FDA-Public Use
  Company Number: US-ROCHE-3214973

PATIENT
  Age: 69 Year
  Sex: Female

DRUGS (7)
  1. ACTEMRA [Suspect]
     Active Substance: TOCILIZUMAB
     Indication: Polymyalgia rheumatica
     Dosage: INJECT 162MG SUBCUTANEOUSLY EVERY WEEK FOR 4 WEEK(S)
     Route: 058
     Dates: start: 202208
  2. ACTEMRA [Suspect]
     Active Substance: TOCILIZUMAB
  3. ACTEMRA [Suspect]
     Active Substance: TOCILIZUMAB
     Indication: Senile osteoporosis
  4. ACTEMRA [Suspect]
     Active Substance: TOCILIZUMAB
  5. ACTEMRA [Suspect]
     Active Substance: TOCILIZUMAB
     Indication: Osteoporosis
  6. ACTEMRA [Suspect]
     Active Substance: TOCILIZUMAB
  7. PREDNISONE [Concomitant]
     Active Substance: PREDNISONE

REACTIONS (2)
  - Ankle fracture [Unknown]
  - Product use issue [Unknown]

NARRATIVE: CASE EVENT DATE: 20220901
